FAERS Safety Report 13155821 (Version 1)
Quarter: 2017Q1

REPORT INFORMATION
  Report Type: Spontaneous
  Country: US (occurrence: US)
  Receive Date: 20170126
  Receipt Date: 20170126
  Transmission Date: 20170428
  Serious: No
  Sender: FDA-Public Use
  Company Number: US-ROCHE-1422525

PATIENT

DRUGS (1)
  1. VALIUM [Suspect]
     Active Substance: DIAZEPAM
     Indication: PRODUCT USED FOR UNKNOWN INDICATION
     Dosage: TAPERED FROM 22 MG TO UNDER 2 MG, MAYBE 1.75 MG
     Route: 065

REACTIONS (2)
  - Drug ineffective [Unknown]
  - Drug administration error [Unknown]
